FAERS Safety Report 21010503 (Version 2)
Quarter: 2022Q3

REPORT INFORMATION
  Report Type: Spontaneous
  Country: US (occurrence: US)
  Receive Date: 20220627
  Receipt Date: 20220817
  Transmission Date: 20221026
  Serious: No
  Sender: FDA-Public Use
  Company Number: US-PFIZER INC-202200889766

PATIENT
  Age: 74 Year
  Sex: Male
  Weight: 99.773 kg

DRUGS (1)
  1. PAXLOVID [Suspect]
     Active Substance: NIRMATRELVIR\RITONAVIR
     Indication: COVID-19 treatment
     Dosage: 3 DF, 2X/DAY (2X 3 TABS)
     Dates: start: 20220608, end: 20220613

REACTIONS (4)
  - Eye pruritus [Recovered/Resolved]
  - COVID-19 [Unknown]
  - Disease recurrence [Unknown]
  - Feeling abnormal [Unknown]

NARRATIVE: CASE EVENT DATE: 20220601
